FAERS Safety Report 19356607 (Version 1)
Quarter: 2021Q2

REPORT INFORMATION
  Report Type: Report from Study
  Country: JP (occurrence: JP)
  Receive Date: 20210601
  Receipt Date: 20210601
  Transmission Date: 20210717
  Serious: Yes (Other)
  Sender: FDA-Public Use
  Company Number: JP-CELLTRION INC.-2021JP006919

PATIENT

DRUGS (7)
  1. CT?P13 [Suspect]
     Active Substance: INFLIXIMAB-DYYB
     Indication: COLITIS ULCERATIVE
     Dosage: 340 MG (WEIGHT: 68 KG)
     Route: 041
     Dates: start: 20181126, end: 20181126
  2. CT?P13 [Suspect]
     Active Substance: INFLIXIMAB-DYYB
     Dosage: 360 MG (WEIGHT: 72 KG)
     Route: 041
     Dates: start: 20190316, end: 20190316
  3. CT?P13 [Suspect]
     Active Substance: INFLIXIMAB-DYYB
     Dosage: 345 MG (WEIGHT: 69 KG)
     Route: 041
     Dates: start: 20190511, end: 20190511
  4. CT?P13 [Suspect]
     Active Substance: INFLIXIMAB-DYYB
     Dosage: 345 MG (WEIGHT: 69.3 KG)
     Route: 041
     Dates: start: 20191221, end: 20191221
  5. MESALAZINE [Concomitant]
     Active Substance: MESALAMINE
     Dosage: 4800 MG, QD
     Route: 048
     Dates: start: 20180319
  6. CT?P13 [Suspect]
     Active Substance: INFLIXIMAB-DYYB
     Dosage: 345 MG (WEIGHT: 69 KG)
     Route: 041
     Dates: start: 20190120, end: 20190120
  7. CT?P13 [Suspect]
     Active Substance: INFLIXIMAB-DYYB
     Dosage: 365 MG (WEIGHT: 73.2 KG)
     Route: 041
     Dates: start: 20201129, end: 20201129

REACTIONS (3)
  - Infusion related reaction [Unknown]
  - Large intestinal polypectomy [Recovered/Resolved]
  - Underdose [Unknown]

NARRATIVE: CASE EVENT DATE: 20200510
